FAERS Safety Report 6490077-4 (Version None)
Quarter: 2009Q4

REPORT INFORMATION
  Report Type: 
  Country: None (occurrence: None)
  Receive Date: 20091211
  Receipt Date: 20081217
  Transmission Date: 20100525
  Serious: No
  Sender: FDA-Public Use
  Company Number: A0760913A

PATIENT
  Sex: Male

DRUGS (3)
  1. FLONASE [Suspect]
     Indication: ILL-DEFINED DISORDER
     Dosage: 1VA PER DAY
     Route: 045
  2. VERAMYST [Suspect]
     Indication: ILL-DEFINED DISORDER
     Dosage: 1SPR PER DAY
     Route: 045
  3. BENAZAPRIL [Concomitant]

REACTIONS (3)
  - EPISTAXIS [None]
  - PRODUCT QUALITY ISSUE [None]
  - THERAPEUTIC RESPONSE DELAYED [None]
